FAERS Safety Report 4550083-3 (Version None)
Quarter: 2005Q1

REPORT INFORMATION
  Report Type: 
  Country: None (occurrence: None)
  Receive Date: 20050110
  Receipt Date: 20041231
  Transmission Date: 20050727
  Serious: Yes (Other)
  Sender: FDA-Public Use
  Company Number: 2004085792

PATIENT
  Sex: Male

DRUGS (2)
  1. ZOLOFT [Suspect]
     Indication: ILL-DEFINED DISORDER
     Dosage: ORAL
     Route: 048
     Dates: end: 20040101
  2. DONEPEXIL HYDROCHLORIDE (DONEPEZIL HYDROCHLORIDE) [Concomitant]

REACTIONS (8)
  - BACK DISORDER [None]
  - DEPRESSION [None]
  - DIABETES MELLITUS [None]
  - DIFFICULTY IN WALKING [None]
  - POST PROCEDURAL COMPLICATION [None]
  - PROSTATE CANCER [None]
  - SLEEP APNOEA SYNDROME [None]
  - URINARY TRACT DISORDER [None]
